FAERS Safety Report 6027512-1 (Version None)
Quarter: 2009Q1

REPORT INFORMATION
  Report Type: 
  Country: None (occurrence: None)
  Receive Date: 20090105
  Receipt Date: 20081224
  Transmission Date: 20090719
  Serious: Yes (Other)
  Sender: FDA-Public Use
  Company Number: EG-ROCHE-605159

PATIENT
  Sex: Male

DRUGS (2)
  1. PEGASYS [Suspect]
     Route: 065
     Dates: start: 20080701, end: 20081201
  2. VIRIN [Concomitant]
     Route: 065
     Dates: start: 20080701, end: 20081201

REACTIONS (7)
  - ANAEMIA [None]
  - DYSPNOEA [None]
  - FATIGUE [None]
  - HEADACHE [None]
  - INSOMNIA [None]
  - INTRA-ABDOMINAL HAEMATOMA [None]
  - MALAISE [None]
